FAERS Safety Report 7907843-8 (Version None)
Quarter: 2011Q4

REPORT INFORMATION
  Report Type: 
  Country: None (occurrence: None)
  Receive Date: 20111110
  Receipt Date: 20111104
  Transmission Date: 20120403
  Serious: Yes (Death, Life-Threatening, Hospitalization)
  Sender: FDA-Public Use
  Company Number: JP-PFIZER INC-2011243101

PATIENT
  Age: 65 Year
  Sex: Male
  Weight: 57.8 kg

DRUGS (7)
  1. TEMSIROLIMUS [Suspect]
     Dosage: 25 MG, WEEKLY
     Dates: start: 20110511, end: 20110727
  2. LOXONIN [Concomitant]
     Dosage: 3 TABLETS/ DAY
     Route: 048
  3. TEMSIROLIMUS [Suspect]
     Indication: RENAL CELL CARCINOMA
     Dosage: 25 MG, WEEKLY
     Dates: start: 20110225, end: 20110401
  4. URINORM [Concomitant]
     Dosage: 50 UG, 1X/DAY
     Route: 048
  5. DECADRON [Concomitant]
     Indication: PROPHYLAXIS
     Dosage: 6.6 UG, 1X/DAY
     Route: 042
  6. TEMSIROLIMUS [Suspect]
     Dosage: 25 MG, WEEKLY
     Dates: start: 20110413, end: 20110427
  7. RESTAMIN [Concomitant]
     Indication: PROPHYLAXIS
     Dosage: 50 UG, 1X/DAY
     Route: 048

REACTIONS (6)
  - BLOOD CREATININE INCREASED [None]
  - BLOOD URIC ACID INCREASED [None]
  - RENAL CELL CARCINOMA [None]
  - ANAEMIA [None]
  - DISEASE PROGRESSION [None]
  - BLOOD UREA INCREASED [None]
